FAERS Safety Report 10235699 (Version 1)
Quarter: 2014Q2

REPORT INFORMATION
  Report Type: Spontaneous
  Country: GB (occurrence: GB)
  Receive Date: 20140613
  Receipt Date: 20140613
  Transmission Date: 20141212
  Serious: Yes (Disabling, Other)
  Sender: FDA-Public Use
  Company Number: GB-BAYER-2014-082994

PATIENT
  Age: 56 Year
  Sex: Female
  Weight: 78 kg

DRUGS (3)
  1. CIPROXIN [Suspect]
     Indication: ABDOMINAL PAIN
     Dosage: 500 MG, BID
     Route: 048
     Dates: start: 20140516, end: 20140519
  2. CIPROXIN [Suspect]
     Indication: DIARRHOEA
  3. CIPROXIN [Suspect]
     Indication: VIRAL INFECTION

REACTIONS (12)
  - Anxiety [Recovering/Resolving]
  - Arthralgia [Not Recovered/Not Resolved]
  - Dyspnoea [Recovering/Resolving]
  - Skin burning sensation [Not Recovered/Not Resolved]
  - Fatigue [Not Recovered/Not Resolved]
  - Feeling abnormal [Recovering/Resolving]
  - Headache [Not Recovered/Not Resolved]
  - Pain in extremity [Not Recovered/Not Resolved]
  - Insomnia [Not Recovered/Not Resolved]
  - Peripheral swelling [Not Recovered/Not Resolved]
  - Tearfulness [Recovering/Resolving]
  - Malaise [Not Recovered/Not Resolved]
